FAERS Safety Report 12183094 (Version 5)
Quarter: 2016Q2

REPORT INFORMATION
  Report Type: Spontaneous
  Country: US (occurrence: US)
  Receive Date: 20160316
  Receipt Date: 20160411
  Transmission Date: 20160815
  Serious: Yes (Other)
  Sender: FDA-Public Use
  Company Number: US-TEVA-643239USA

PATIENT
  Sex: Female

DRUGS (1)
  1. ZOLPIDEM [Suspect]
     Active Substance: ZOLPIDEM\ZOLPIDEM TARTRATE
     Route: 065
     Dates: start: 201602, end: 201603

REACTIONS (12)
  - Insomnia [Unknown]
  - Hallucination [Unknown]
  - Drug withdrawal syndrome [Unknown]
  - Self injurious behaviour [Unknown]
  - Malaise [Unknown]
  - Abdominal pain upper [Unknown]
  - Product substitution issue [Unknown]
  - Drug hypersensitivity [Unknown]
  - Gastrointestinal disorder [Unknown]
  - Suspected counterfeit product [Unknown]
  - Drug ineffective [Unknown]
  - Change of bowel habit [Unknown]
